FAERS Safety Report 16687373 (Version 1)
Quarter: 2019Q3

REPORT INFORMATION
  Report Type: Spontaneous
  Country: US (occurrence: US)
  Receive Date: 20190809
  Receipt Date: 20190809
  Transmission Date: 20191004
  Serious: No
  Sender: FDA-Public Use
  Company Number: US-TARO-2019TAR00125

PATIENT
  Age: 87 Year
  Sex: Female
  Weight: 69.05 kg

DRUGS (20)
  1. WARFARIN SODIUM TABLETS USP 5MG [Suspect]
     Active Substance: WARFARIN SODIUM
     Indication: TRANSIENT ISCHAEMIC ATTACK
     Dosage: UNK, 1X/DAY
     Route: 048
     Dates: start: 20121001
  2. WARFARIN SODIUM TABLETS USP 5MG [Suspect]
     Active Substance: WARFARIN SODIUM
     Dosage: 5 MG, 1X/WEEK (F)
     Route: 048
     Dates: start: 20180517, end: 20180531
  3. WARFARIN SODIUM TABLETS USP 5MG [Suspect]
     Active Substance: WARFARIN SODIUM
     Dosage: 10 MG, 2X/WEEK (MF)
     Route: 048
     Dates: start: 20190208, end: 20190213
  4. VITAMIN C [Concomitant]
     Active Substance: ASCORBIC ACID
  5. WARFARIN SODIUM TABLETS USP 5MG [Suspect]
     Active Substance: WARFARIN SODIUM
     Indication: CEREBROVASCULAR ACCIDENT
     Dosage: 5 MG, 3X/WEEK (MWF)
     Route: 048
     Dates: end: 20180405
  6. WARFARIN SODIUM TABLETS USP 5MG [Suspect]
     Active Substance: WARFARIN SODIUM
     Dosage: 2.5 MG, ONCE (5 TIMES IN TOTAL OVER DATE RANGE)
     Route: 048
     Dates: start: 20180322, end: 20180530
  7. WARFARIN SODIUM TABLETS USP 5MG [Suspect]
     Active Substance: WARFARIN SODIUM
     Dosage: 7.5 MG, 6X/WEEK
     Route: 048
     Dates: start: 20190201, end: 20190207
  8. FLUOXETINE [Concomitant]
     Active Substance: FLUOXETINE HYDROCHLORIDE
  9. OMEPRAZOLE. [Concomitant]
     Active Substance: OMEPRAZOLE
  10. CALCIUM CARBONATE. [Concomitant]
     Active Substance: CALCIUM CARBONATE
  11. WARFARIN SODIUM TABLETS USP 5MG [Suspect]
     Active Substance: WARFARIN SODIUM
     Dosage: 7.5 MG, 6X/WEEK
     Route: 048
     Dates: start: 20180517, end: 20180531
  12. WARFARIN SODIUM TABLETS USP 5MG [Suspect]
     Active Substance: WARFARIN SODIUM
     Dosage: 10 MG, 1X/WEEK (F)
     Route: 048
     Dates: start: 20190201, end: 20190207
  13. WARFARIN SODIUM TABLETS USP 5MG [Suspect]
     Active Substance: WARFARIN SODIUM
     Dosage: 7.5 MG, 5X/WEEK
     Route: 048
     Dates: start: 20190208, end: 20190213
  14. WARFARIN SODIUM TABLETS USP 5MG [Suspect]
     Active Substance: WARFARIN SODIUM
     Dosage: 5 MG, ONCE
     Route: 048
     Dates: start: 20190116, end: 20190116
  15. PRIMIDONE. [Concomitant]
     Active Substance: PRIMIDONE
  16. WARFARIN SODIUM TABLETS USP 5MG [Suspect]
     Active Substance: WARFARIN SODIUM
     Dosage: 7.5 MG, 4X/WEEK
     Route: 048
     Dates: end: 20180405
  17. WARFARIN SODIUM TABLETS USP 5MG [Suspect]
     Active Substance: WARFARIN SODIUM
     Dosage: 5 MG, 2X/WEEK (MF)
     Route: 048
     Dates: start: 20180406, end: 20180516
  18. WARFARIN SODIUM TABLETS USP 5MG [Suspect]
     Active Substance: WARFARIN SODIUM
     Dosage: 7.5 MG, 5X/WEEK
     Route: 048
     Dates: start: 20180406, end: 20180516
  19. WARFARIN SODIUM TABLETS USP 5MG [Suspect]
     Active Substance: WARFARIN SODIUM
     Dosage: 7.5 MG, 1X/DAY
     Route: 048
     Dates: start: 20180601, end: 20190131
  20. VITAMIN B COMPLEX [Concomitant]
     Active Substance: CYANOCOBALAMIN\DEXPANTHENOL\NIACINAMIDE\PYRIDOXINE HYDROCHLORIDE\RIBOFLAVIN 5^-PHOSPHATE SODIUM\THIAMINE HYDROCHLORIDE\VITAMIN B COMPLEX

REACTIONS (3)
  - Anticoagulation drug level below therapeutic [Not Recovered/Not Resolved]
  - Drug ineffective [Recovered/Resolved]
  - Inappropriate schedule of product administration [Recovered/Resolved]

NARRATIVE: CASE EVENT DATE: 20180208
